FAERS Safety Report 10244044 (Version 3)
Quarter: 2014Q3

REPORT INFORMATION
  Report Type: Spontaneous
  Country: US (occurrence: None)
  Receive Date: 20140616
  Receipt Date: 20140725
  Transmission Date: 20150326
  Serious: Yes (Other)
  Sender: FDA-Public Use
  Company Number: 2014-US-006863

PATIENT
  Age: 34 Year
  Sex: Female

DRUGS (2)
  1. XYREM [Suspect]
     Active Substance: SODIUM OXYBATE
     Indication: NARCOLEPSY
     Route: 048
     Dates: start: 200702
  2. XYREM [Suspect]
     Active Substance: SODIUM OXYBATE
     Indication: CATAPLEXY
     Route: 048
     Dates: start: 200702

REACTIONS (7)
  - Abdominal adhesions [None]
  - Palpitations [None]
  - Mental impairment [None]
  - Hormone level abnormal [None]
  - Fatigue [None]
  - Migraine [None]
  - Pain [None]

NARRATIVE: CASE EVENT DATE: 20140520
